FAERS Safety Report 14604566 (Version 1)
Quarter: 2018Q1

REPORT INFORMATION
  Report Type: Report from Study
  Country: HU (occurrence: HU)
  Receive Date: 20180306
  Receipt Date: 20180306
  Transmission Date: 20180509
  Serious: Yes (Death, Hospitalization, Other)
  Sender: FDA-Public Use
  Company Number: HU-PFIZER INC-2018088721

PATIENT
  Age: 40 Year
  Sex: Female

DRUGS (7)
  1. CLINDAMYCIN HCL [Suspect]
     Active Substance: CLINDAMYCIN HYDROCHLORIDE
     Dosage: 600 MG, 3X
  2. DELAGIL [Concomitant]
     Active Substance: CHLOROQUINE PHOSPHATE
     Dosage: 250 MG, UNK
  3. COVEREX [Concomitant]
     Dosage: UNK
  4. CILASTATIN/IMIPENEM [Suspect]
     Active Substance: CILASTATIN SODIUM\IMIPENEM
     Dosage: 1 G, 3X
  5. TIGECYCLINE. [Suspect]
     Active Substance: TIGECYCLINE
     Dosage: 100 MG, UNK
  6. CEFTRIAXONE. [Concomitant]
     Active Substance: CEFTRIAXONE
     Dosage: 2 G, UNK
  7. MEDROL [Concomitant]
     Active Substance: METHYLPREDNISOLONE
     Dosage: 16 MG, UNK

REACTIONS (3)
  - Septic shock [Fatal]
  - Hepatotoxicity [Unknown]
  - Procalcitonin increased [Unknown]
